FAERS Safety Report 15655597 (Version 2)
Quarter: 2018Q4

REPORT INFORMATION
  Report Type: Spontaneous
  Country: US (occurrence: US)
  Receive Date: 20181126
  Receipt Date: 20181127
  Transmission Date: 20190205
  Serious: No
  Sender: FDA-Public Use
  Company Number: US-009507513-1811USA008840

PATIENT
  Sex: Female

DRUGS (1)
  1. NEXPLANON [Suspect]
     Active Substance: ETONOGESTREL
     Dosage: 1 DOSAGE FORM
     Route: 059

REACTIONS (5)
  - Muscle spasms [Unknown]
  - Menorrhagia [Unknown]
  - Weight increased [Unknown]
  - Menstruation delayed [Unknown]
  - Trichorrhexis [Unknown]
